FAERS Safety Report 4566398-9 (Version None)
Quarter: 2005Q1

REPORT INFORMATION
  Report Type: 
  Country: None (occurrence: None)
  Receive Date: 20050126
  Receipt Date: 20050126
  Transmission Date: 20050727
  Serious: Yes (Life-Threatening, Hospitalization)
  Sender: FDA-Public Use
  Company Number: None

PATIENT
  Age: 15 Month
  Sex: Male
  Weight: 9.5255 kg

DRUGS (4)
  1. BACLOFEN [Suspect]
     Indication: MUSCLE SPASTICITY
     Dosage: 5MG  TID PARENTERAL
     Route: 051
     Dates: start: 20050119, end: 20050120
  2. VALIUM [Concomitant]
  3. PHENOBARBITAL [Concomitant]
  4. PEPCID [Concomitant]

REACTIONS (14)
  - APNOEIC ATTACK [None]
  - COMA [None]
  - DEPRESSED LEVEL OF CONSCIOUSNESS [None]
  - DRY MOUTH [None]
  - DYSPNOEA [None]
  - DYSURIA [None]
  - HYPOTONIA [None]
  - LETHARGY [None]
  - MENTAL STATUS CHANGES [None]
  - MOANING [None]
  - OEDEMA PERIPHERAL [None]
  - PYREXIA [None]
  - RETCHING [None]
  - STARING [None]
